FAERS Safety Report 17571653 (Version 4)
Quarter: 2022Q1

REPORT INFORMATION
  Report Type: Spontaneous
  Country: US (occurrence: None)
  Receive Date: 20200323
  Receipt Date: 20220225
  Transmission Date: 20220424
  Serious: Yes (Hospitalization)
  Sender: FDA-Public Use
  Company Number: US-ROCHE-2569196

PATIENT
  Sex: Male

DRUGS (1)
  1. ESBRIET [Suspect]
     Active Substance: PIRFENIDONE
     Indication: Idiopathic pulmonary fibrosis
     Route: 048
     Dates: start: 20200213

REACTIONS (6)
  - Dyspnoea [Unknown]
  - Pain [Unknown]
  - Abdominal discomfort [Unknown]
  - Dizziness [Unknown]
  - Pruritus [Unknown]
  - Ill-defined disorder [Unknown]
